FAERS Safety Report 5135159-4 (Version None)
Quarter: 2006Q4

REPORT INFORMATION
  Report Type: 
  Country: None (occurrence: None)
  Receive Date: 20060831
  Receipt Date: 20051221
  Transmission Date: 20070319
  Serious: Yes (Other)
  Sender: FDA-Public Use
  Company Number: 2005172590

PATIENT
  Age: 24 Year
  Sex: Female
  Weight: 92 kg

DRUGS (2)
  1. DETROL LA [Suspect]
     Indication: URINARY RETENTION
     Dosage: 4 MG (4 MG , 1 IN 1 D), ORAL
     Route: 048
     Dates: start: 20051219, end: 20051220
  2. ORAL CONTRACEPTIVE NOS (ORAL CONTRACEPTIVE NOS) [Concomitant]

REACTIONS (1)
  - URINARY RETENTION [None]
